FAERS Safety Report 12295326 (Version 1)
Quarter: 2016Q2

REPORT INFORMATION
  Report Type: Spontaneous
  Country: US (occurrence: US)
  Receive Date: 20160422
  Receipt Date: 20160422
  Transmission Date: 20160815
  Serious: No
  Sender: FDA-Public Use
  Company Number: US-MYLANLABS-2015M1008938

PATIENT
  Age: 50 Year
  Sex: Male

DRUGS (2)
  1. TIZANIDINE TABLETS, USP [Suspect]
     Active Substance: TIZANIDINE
     Indication: MUSCLE SPASMS
     Dosage: 4 MG, HS
     Route: 048
     Dates: start: 201409
  2. ANALGESICS [Interacting]
     Active Substance: UNSPECIFIED INGREDIENT
     Indication: PAIN
     Dosage: UNK

REACTIONS (4)
  - Confusional state [Recovered/Resolved]
  - Mood swings [Recovered/Resolved]
  - Drug interaction [Recovered/Resolved]
  - Hallucination [Recovered/Resolved]

NARRATIVE: CASE EVENT DATE: 201412
